FAERS Safety Report 4957724-7 (Version None)
Quarter: 2006Q1

REPORT INFORMATION
  Report Type: 
  Country: None (occurrence: None)
  Receive Date: 20060324
  Receipt Date: 20060213
  Transmission Date: 20060701
  Serious: Yes (Other)
  Sender: FDA-Public Use
  Company Number: GB200601000316

PATIENT
  Age: 54 Year
  Sex: Male

DRUGS (1)
  1. SOMATROPIN (SOMATROPIN UNKNOWN FORMULATION) UNKNOWN [Suspect]
     Indication: GROWTH HORMONE DEFICIENCY
     Dosage: 0.3 MG,

REACTIONS (1)
  - NEOPLASM PROGRESSION [None]
